FAERS Safety Report 7353347-3 (Version None)
Quarter: 2011Q1

REPORT INFORMATION
  Report Type: 
  Country: None (occurrence: None)
  Receive Date: 20110315
  Receipt Date: 20110304
  Transmission Date: 20110831
  Serious: Yes (Life-Threatening, Hospitalization)
  Sender: FDA-Public Use
  Company Number: US-BRISTOL-MYERS SQUIBB COMPANY-14728893

PATIENT
  Age: 51 Year
  Sex: Male
  Weight: 93 kg

DRUGS (16)
  1. AVANDAMET [Concomitant]
     Indication: DIABETES MELLITUS
     Dosage: 1 DF= 4MG/1000MG
  2. ASCORBIC ACID [Concomitant]
     Route: 048
  3. LORAZEPAM [Concomitant]
     Indication: ANXIETY
     Dosage: 1 DF= 2 TABS
     Route: 048
  4. POTASSIUM CHLORIDE [Concomitant]
  5. FENTANYL [Concomitant]
     Indication: PAIN
     Route: 062
  6. GLIPIZIDE [Concomitant]
     Indication: DIABETES MELLITUS
     Dosage: GLIPIZIDE XL
     Route: 048
  7. COUMADIN [Concomitant]
     Indication: DEEP VEIN THROMBOSIS
     Dates: end: 20090707
  8. ALIMTA [Suspect]
     Indication: NON-SMALL CELL LUNG CANCER METASTATIC
     Dosage: STOPPED ON 07JUL09(84)DAYS.
     Route: 042
     Dates: start: 20090414, end: 20090707
  9. MELATONIN [Concomitant]
  10. MORPHINE SULFATE [Concomitant]
     Indication: PAIN
  11. ERBITUX [Suspect]
     Indication: NON-SMALL CELL LUNG CANCER METASTATIC
     Dosage: STOPPED ON 14JUL09(91DAYS).
     Route: 042
     Dates: start: 20090414, end: 20090714
  12. GLUCOSAMINE [Concomitant]
     Route: 048
  13. CALCIUM SUPPLEMENT [Concomitant]
     Indication: SUPPLEMENTATION THERAPY
  14. LIPITOR [Concomitant]
     Route: 048
  15. MULTI-VITAMIN [Concomitant]
     Dosage: 1 DF= 1 TAB
     Route: 048
  16. MAGNESIUM [Concomitant]
     Route: 048

REACTIONS (1)
  - OEDEMA PERIPHERAL [None]
